FAERS Safety Report 12569255 (Version 1)
Quarter: 2016Q3

REPORT INFORMATION
  Report Type: Report from Study
  Country: CA (occurrence: CA)
  Receive Date: 20160719
  Receipt Date: 20160719
  Transmission Date: 20161109
  Serious: Yes (Hospitalization, Other)
  Sender: FDA-Public Use
  Company Number: CA-ROCHE-1186444

PATIENT
  Age: 16 Year
  Sex: Male
  Weight: 46 kg

DRUGS (14)
  1. ACTEMRA [Suspect]
     Active Substance: TOCILIZUMAB
     Indication: JUVENILE IDIOPATHIC ARTHRITIS
     Dosage: THERAPY DELAYED
     Route: 042
     Dates: start: 20130110
  2. ACTEMRA [Suspect]
     Active Substance: TOCILIZUMAB
     Route: 042
     Dates: start: 20150901
  3. HYPERTONIC SALINE [Concomitant]
     Active Substance: SODIUM CHLORIDE
  4. METHOTREXATE. [Concomitant]
     Active Substance: METHOTREXATE
     Route: 058
  5. FRISIUM [Concomitant]
     Active Substance: CLOBAZAM
     Route: 065
  6. ALVESCO [Concomitant]
     Active Substance: CICLESONIDE
  7. NAPROSYN [Suspect]
     Active Substance: NAPROXEN
     Route: 065
  8. EURO-FOLIC [Concomitant]
     Route: 065
  9. SINGULAIR [Concomitant]
     Active Substance: MONTELUKAST SODIUM
  10. VENTOLIN [Concomitant]
     Active Substance: ALBUTEROL SULFATE
  11. NAPROSYN [Suspect]
     Active Substance: NAPROXEN
     Indication: PRODUCT USED FOR UNKNOWN INDICATION
     Route: 065
  12. LOSEC [Concomitant]
     Active Substance: OMEPRAZOLE
  13. ADVAIR HFA [Concomitant]
     Active Substance: FLUTICASONE PROPIONATE\SALMETEROL XINAFOATE
  14. XOLAIR [Concomitant]
     Active Substance: OMALIZUMAB
     Dosage: 1FS/MS
     Route: 065

REACTIONS (21)
  - Respiratory tract infection [Not Recovered/Not Resolved]
  - Immunosuppression [Not Recovered/Not Resolved]
  - Tachycardia [Unknown]
  - Blood cortisol decreased [Unknown]
  - Lung infection [Not Recovered/Not Resolved]
  - Hepatic enzyme increased [Unknown]
  - Sputum discoloured [Unknown]
  - Pneumonia [Not Recovered/Not Resolved]
  - Cough [Unknown]
  - Lung infection pseudomonal [Recovered/Resolved]
  - Bacterial infection [Not Recovered/Not Resolved]
  - Pneumonia [Unknown]
  - Hypotension [Unknown]
  - Septic shock [Not Recovered/Not Resolved]
  - Insomnia [Unknown]
  - Body temperature increased [Recovered/Resolved]
  - Post procedural haematoma [Recovered/Resolved]
  - Corneal disorder [Unknown]
  - Nasopharyngitis [Not Recovered/Not Resolved]
  - Malaise [Unknown]
  - Bronchitis [Not Recovered/Not Resolved]

NARRATIVE: CASE EVENT DATE: 20130129
